FAERS Safety Report 8747706 (Version 2)
Quarter: 2014Q1

REPORT INFORMATION
  Report Type: Spontaneous
  Country: US (occurrence: US)
  Receive Date: 20120827
  Receipt Date: 20140331
  Transmission Date: 20141002
  Serious: Yes (Hospitalization, Other)
  Sender: FDA-Public Use
  Company Number: US-009507513-1208USA008531

PATIENT
  Sex: Female
  Weight: 66.21 kg

DRUGS (6)
  1. FOSAMAX [Suspect]
     Indication: OSTEOPOROSIS
     Dosage: 70 MG, QW
     Route: 048
     Dates: start: 2000
  2. FOSAMAX PLUS D [Suspect]
     Indication: OSTEOPOROSIS
     Dosage: 70MG/2800
     Route: 048
     Dates: start: 20070728, end: 200912
  3. FOSAMAX PLUS D [Suspect]
     Dosage: 70/5600 QW
     Route: 048
  4. ALENDRONATE SODIUM [Suspect]
     Dosage: 70 MG, UNK
  5. CALCIUM (UNSPECIFIED) [Concomitant]
     Indication: OSTEOPOROSIS
     Dosage: 1500 MG, UNK
  6. CALCIUM (UNSPECIFIED) (+) VITAMIN D (UNSPECIFIED) [Concomitant]
     Indication: OSTEOPOROSIS

REACTIONS (10)
  - Intramedullary rod insertion [Unknown]
  - Femur fracture [Unknown]
  - Hypercholesterolaemia [Unknown]
  - Adverse event [Unknown]
  - Osteopenia [Unknown]
  - Vulvovaginal dryness [Unknown]
  - Groin pain [Unknown]
  - Cystocele [Unknown]
  - Breast mass [Unknown]
  - Oestrogen deficiency [Unknown]
